FAERS Safety Report 5242337-2 (Version None)
Quarter: 2007Q1

REPORT INFORMATION
  Report Type: 
  Country: None (occurrence: None)
  Receive Date: 20070216
  Receipt Date: 20070216
  Transmission Date: 20070707
  Serious: Yes (Hospitalization)
  Sender: FDA-Public Use
  Company Number: None

PATIENT
  Age: 46 Year
  Sex: Male

DRUGS (8)
  1. NPH INSULIN [Suspect]
     Indication: DIABETES MELLITUS INSULIN-DEPENDENT
     Dosage: 15 UNITS QAM 10 UNITS QPM
     Dates: start: 20040501
  2. RISPERDAL [Concomitant]
  3. CLONAZEPAM [Concomitant]
  4. DSS [Concomitant]
  5. ZITHROMAX [Concomitant]
  6. VENLAFAXINE HCL [Concomitant]
  7. OMEPRAZOLE [Concomitant]
  8. VIOKASE [Concomitant]

REACTIONS (1)
  - HYPOGLYCAEMIA [None]
